FAERS Safety Report 20989202 (Version 1)
Quarter: 2022Q2

REPORT INFORMATION
  Report Type: Report from Study
  Country: IN (occurrence: IN)
  Receive Date: 20220621
  Receipt Date: 20220621
  Transmission Date: 20220721
  Serious: Yes (Other)
  Sender: FDA-Public Use
  Company Number: IN-002147023-NVSC2020IN075233

PATIENT

DRUGS (2)
  1. RUXOLITINIB [Suspect]
     Active Substance: RUXOLITINIB
     Indication: Myelofibrosis
     Dosage: 15 MG, BID
     Route: 065
     Dates: start: 20160315, end: 20210416
  2. RUXOLITINIB [Suspect]
     Active Substance: RUXOLITINIB
     Dosage: 15 MG, BID
     Route: 065
     Dates: start: 20211222

REACTIONS (9)
  - Cholelithiasis [Unknown]
  - Liver disorder [Unknown]
  - COVID-19 [Unknown]
  - Platelet count increased [Unknown]
  - Platelet count decreased [Unknown]
  - Melaena [Recovering/Resolving]
  - Portal hypertensive gastropathy [Unknown]
  - Splenomegaly [Recovering/Resolving]
  - Varices oesophageal [Unknown]

NARRATIVE: CASE EVENT DATE: 20200228
